FAERS Safety Report 9957985 (Version 1)
Quarter: 2014Q1

REPORT INFORMATION
  Report Type: Report from Study
  Country: US (occurrence: US)
  Receive Date: 20140304
  Receipt Date: 20140304
  Transmission Date: 20141002
  Serious: No
  Sender: FDA-Public Use
  Company Number: US-ABBVIE-13P-163-1095009-00

PATIENT
  Sex: Female

DRUGS (22)
  1. CYMBALTA [Concomitant]
     Indication: EMOTIONAL DISORDER
  2. DIOVAN HCT [Concomitant]
     Indication: HYPERTENSION
     Dosage: 320/25MG
  3. ACIPHEX [Concomitant]
     Indication: GASTROOESOPHAGEAL REFLUX DISEASE
  4. RESTASIS [Concomitant]
     Indication: CORNEAL DYSTROPHY
     Dosage: VIAL, EACH EYE
  5. ALLERGY SHOTS [Concomitant]
     Indication: SEASONAL ALLERGY
  6. ALLERGY SHOTS [Concomitant]
     Indication: MYCOTIC ALLERGY
  7. ALLERGY SHOTS [Concomitant]
     Indication: HOUSE DUST ALLERGY
  8. ALLERGY SHOTS [Concomitant]
     Indication: MULTIPLE ALLERGIES
  9. ASTEPRO [Concomitant]
     Indication: PRODUCT USED FOR UNKNOWN INDICATION
     Dosage: SPRAY, EACH NOSTRIL
  10. NASACORT [Concomitant]
     Indication: PRODUCT USED FOR UNKNOWN INDICATION
     Dosage: SPRAY, EACH NOSTRIL
  11. VITAMIN B6 COMPLEX [Concomitant]
     Indication: PRODUCT USED FOR UNKNOWN INDICATION
     Dosage: DAILY
  12. MAGNESIUM [Concomitant]
     Indication: PRODUCT USED FOR UNKNOWN INDICATION
     Dosage: DAILY
  13. CURCUMIN [Concomitant]
     Indication: PRODUCT USED FOR UNKNOWN INDICATION
     Dosage: DAILY
  14. VITAMIN C [Concomitant]
     Indication: PRODUCT USED FOR UNKNOWN INDICATION
     Dosage: DAILY
  15. CITRACAL WITH D [Concomitant]
     Indication: PRODUCT USED FOR UNKNOWN INDICATION
     Dosage: DAILY
  16. VITAMIN D3 [Concomitant]
     Indication: PRODUCT USED FOR UNKNOWN INDICATION
     Dosage: DAILY
  17. VITAMIN B-12 [Concomitant]
     Indication: PRODUCT USED FOR UNKNOWN INDICATION
     Dosage: DAILY
  18. ZANTAC [Concomitant]
     Indication: GASTROOESOPHAGEAL REFLUX DISEASE
  19. HUMIRA [Suspect]
     Indication: RHEUMATOID ARTHRITIS
     Dates: start: 20130425
  20. METHOTREXATE [Concomitant]
     Indication: RHEUMATOID ARTHRITIS
     Dosage: WEEKLY
  21. AMLODIPINE [Concomitant]
     Indication: HYPERTENSION
  22. FOLIC ACID [Concomitant]
     Indication: VITAMIN SUPPLEMENTATION

REACTIONS (1)
  - Sjogren^s syndrome [Not Recovered/Not Resolved]
